FAERS Safety Report 8987722 (Version 1)
Quarter: 2012Q4

REPORT INFORMATION
  Report Type: 
  Country: JP (occurrence: JP)
  Receive Date: 20121227
  Receipt Date: 20121227
  Transmission Date: 20130627
  Serious: Yes (Other)
  Sender: FDA-Public Use
  Company Number: JP-ROCHE-GNE301031

PATIENT
  Sex: Female

DRUGS (10)
  1. RANIBIZUMAB [Suspect]
     Indication: AGE-RELATED MACULAR DEGENERATION
     Dosage: 0.05 mL, Unknown
     Route: 050
     Dates: start: 20090403
  2. RANIBIZUMAB [Suspect]
     Dosage: 0.05 mL, Unknown
     Route: 050
     Dates: start: 20090424
  3. RANIBIZUMAB [Suspect]
     Dosage: 0.05 mL, Unknown
     Route: 050
     Dates: start: 20090501
  4. RANIBIZUMAB [Suspect]
     Dosage: 0.05 mL, Unknown
     Route: 050
     Dates: start: 20090522
  5. RANIBIZUMAB [Suspect]
     Dosage: 0.05 mL, Unknown
     Route: 050
     Dates: start: 20090626
  6. RANIBIZUMAB [Suspect]
     Route: 050
     Dates: start: 20100129
  7. VISUDYNE [Concomitant]
     Indication: AGE-RELATED MACULAR DEGENERATION
     Dosage: UNK
     Route: 065
     Dates: start: 20090410
  8. CRAVIT [Concomitant]
     Indication: PRODUCT USED FOR UNKNOWN INDICATION
     Dosage: UNK
     Route: 065
     Dates: start: 200904, end: 201001
  9. ADALAT CR [Concomitant]
     Indication: PRODUCT USED FOR UNKNOWN INDICATION
  10. EBASTINE [Concomitant]

REACTIONS (2)
  - Retinal pigment epithelial tear [Recovering/Resolving]
  - Inappropriate schedule of drug administration [Unknown]
